FAERS Safety Report 5363404-9 (Version None)
Quarter: 2007Q2

REPORT INFORMATION
  Report Type: 
  Country: None (occurrence: None)
  Receive Date: 20070618
  Receipt Date: 20070604
  Transmission Date: 20071010
  Serious: Yes (Hospitalization)
  Sender: FDA-Public Use
  Company Number: S07-FRA-02226-01

PATIENT
  Age: 33 Year
  Sex: Male

DRUGS (9)
  1. ESCITALOPRAM [Suspect]
     Indication: ANXIETY
     Dosage: 10 MG BID PO
     Route: 048
     Dates: start: 20070218
  2. ESCITALOPRAM [Suspect]
     Indication: DEPRESSION
     Dosage: 10 MG BID PO
     Route: 048
     Dates: start: 20070218
  3. ESCITALOPRAM [Suspect]
     Indication: ANXIETY
     Dosage: 10 MG QD PO
     Route: 048
     Dates: end: 20070328
  4. ESCITALOPRAM [Suspect]
     Indication: DEPRESSION
     Dosage: 10 MG QD PO
     Route: 048
     Dates: end: 20070328
  5. TRANXENE [Concomitant]
  6. TRILEPTAL [Concomitant]
  7. LEXOMIL                    (BROMAZEPAM) [Concomitant]
  8. FORLAX (MACROGOL) [Concomitant]
  9. DAFLON         (DIOSMIN) [Concomitant]

REACTIONS (2)
  - URINARY RETENTION [None]
  - URINARY TRACT DISORDER [None]
